FAERS Safety Report 7600120-4 (Version None)
Quarter: 2011Q3

REPORT INFORMATION
  Report Type: 
  Country: None (occurrence: None)
  Receive Date: 20110711
  Receipt Date: 20110628
  Transmission Date: 20111222
  Serious: Yes (Hospitalization)
  Sender: FDA-Public Use
  Company Number: US-ELI_LILLY_AND_COMPANY-US201104000297

PATIENT
  Sex: Female

DRUGS (20)
  1. ALDACTONE [Concomitant]
  2. XOPENEX [Concomitant]
  3. ZANTAC [Concomitant]
  4. METRONIDAZOLE [Concomitant]
  5. CRESTOR [Concomitant]
  6. FORTEO [Suspect]
     Indication: OSTEOPOROSIS
     Dosage: 20 UG, QD
     Dates: start: 20110308
  7. WARFARIN SODIUM [Concomitant]
  8. LEVEMIR [Concomitant]
  9. CORDARONE [Concomitant]
  10. IMDUR [Concomitant]
  11. ULTRAM [Concomitant]
  12. FORTEO [Suspect]
     Dosage: 20 UG, QD
  13. FORTEO [Suspect]
     Dosage: 20 UG, QD
     Dates: start: 20110519
  14. NOVOLIN R [Concomitant]
  15. ASPIRIN [Concomitant]
     Dosage: 81 MG, UNK
  16. PREDNISONE [Concomitant]
  17. RAMIPRIL [Concomitant]
  18. BUSPIRONE HCL [Concomitant]
  19. TRICOR [Concomitant]
  20. CARVEDILOL [Concomitant]

REACTIONS (10)
  - ELECTROLYTE IMBALANCE [None]
  - URINARY TRACT INFECTION [None]
  - ASTHENIA [None]
  - DEHYDRATION [None]
  - ILL-DEFINED DISORDER [None]
  - HYPOPHAGIA [None]
  - ABASIA [None]
  - MOBILITY DECREASED [None]
  - BLOOD PRESSURE DECREASED [None]
  - VOMITING [None]
